FAERS Safety Report 5212590-X (Version None)
Quarter: 2007Q1

REPORT INFORMATION
  Report Type: 
  Country: None (occurrence: None)
  Receive Date: 20070118
  Receipt Date: 20070109
  Transmission Date: 20070707
  Serious: Yes (Disabling, Other)
  Sender: FDA-Public Use
  Company Number: SE-PFIZER INC-2007000457

PATIENT
  Sex: Female

DRUGS (3)
  1. LYRICA [Suspect]
     Indication: NEURALGIA
     Route: 048
  2. TRAMADOL HCL [Concomitant]
  3. PANODIL [Concomitant]
     Route: 048

REACTIONS (2)
  - GAIT DISTURBANCE [None]
  - URINARY RETENTION [None]
